FAERS Safety Report 13543198 (Version 1)
Quarter: 2017Q2

REPORT INFORMATION
  Report Type: Not Available
  Country: US (occurrence: US)
  Receive Date: 20170514
  Receipt Date: 20170514
  Transmission Date: 20170830
  Serious: Yes (Other)
  Sender: FDA-Public Use
  Company Number: US-ANIPHARMA-2016-US-007754

PATIENT
  Sex: Female
  Weight: 59.87 kg

DRUGS (2)
  1. ZITHROMAX [Suspect]
     Active Substance: AZITHROMYCIN DIHYDRATE
     Dosage: 2 TABLETS ON DAY ONE, THEN 1 TABLET DAILY
     Route: 048
     Dates: start: 20160611, end: 20160612
  2. PROMETHAZINE HCL (NON-SPECIFIC) [Suspect]
     Active Substance: PROMETHAZINE HYDROCHLORIDE
     Dosage: 3 TEASPOONS 3 TIMES DAILY
     Route: 048
     Dates: start: 20160611

REACTIONS (2)
  - Muscle spasms [Recovered/Resolved]
  - Seizure [Unknown]

NARRATIVE: CASE EVENT DATE: 20160612
